FAERS Safety Report 4294788-0 (Version None)
Quarter: 2004Q1

REPORT INFORMATION
  Report Type: 
  Country: None (occurrence: None)
  Receive Date: 20040216
  Receipt Date: 20020612
  Transmission Date: 20041129
  Serious: Yes (Other)
  Sender: FDA-Public Use
  Company Number: US-GLAXOSMITHKLINE-A0372739A

PATIENT
  Age: 32 Year
  Sex: Female

DRUGS (5)
  1. LAMICTAL [Suspect]
     Dosage: 25MG PER DAY
     Route: 048
     Dates: start: 20020517
  2. DOXEPIN HCL [Concomitant]
     Dosage: 150MG PER DAY
  3. KLONOPIN [Concomitant]
     Dosage: 1MG TWICE PER DAY
  4. LOESTRIN 1.5/30 [Concomitant]
  5. HYDROCODONE [Concomitant]

REACTIONS (4)
  - HEADACHE [None]
  - PYREXIA [None]
  - RASH [None]
  - STEVENS-JOHNSON SYNDROME [None]
